FAERS Safety Report 5948512-3 (Version None)
Quarter: 2008Q4

REPORT INFORMATION
  Report Type: 
  Country: None (occurrence: None)
  Receive Date: 20081111
  Receipt Date: 20081103
  Transmission Date: 20090506
  Serious: Yes (Life-Threatening)
  Sender: FDA-Public Use
  Company Number: B0545550A

PATIENT
  Age: 48 Year
  Sex: Male

DRUGS (3)
  1. BUPROPION HCL [Suspect]
     Dosage: 300MG PER DAY
     Route: 065
  2. DISULFIRAM [Concomitant]
     Indication: ALCOHOL ABUSE
     Route: 065
  3. NALTREXONE [Concomitant]
     Indication: ALCOHOL ABUSE
     Route: 065

REACTIONS (5)
  - CHOLURIA [None]
  - HEPATITIS ACUTE [None]
  - HEPATOMEGALY [None]
  - HYPERTRANSAMINASAEMIA [None]
  - JAUNDICE [None]
